FAERS Safety Report 24735224 (Version 1)
Quarter: 2024Q4

REPORT INFORMATION
  Report Type: Spontaneous
  Country: FR (occurrence: FR)
  Receive Date: 20241215
  Receipt Date: 20241215
  Transmission Date: 20250115
  Serious: Yes (Hospitalization)
  Sender: JOHNSON AND JOHNSON
  Company Number: None

PATIENT
  Age: 17 Year
  Sex: Male
  Weight: 72 kg

DRUGS (4)
  1. CONCERTA [Suspect]
     Active Substance: METHYLPHENIDATE HYDROCHLORIDE
     Indication: Medication error
     Route: 048
     Dates: start: 20241029, end: 20241029
  2. CONCERTA [Suspect]
     Active Substance: METHYLPHENIDATE HYDROCHLORIDE
  3. VENLAFAXINE HYDROCHLORIDE [Concomitant]
     Active Substance: VENLAFAXINE HYDROCHLORIDE
  4. QUETIAPINE [Concomitant]
     Active Substance: QUETIAPINE
     Indication: Product used for unknown indication

REACTIONS (3)
  - Confusional state [Recovered/Resolved]
  - Product dispensing error [Recovered/Resolved]
  - Incorrect dose administered [Recovered/Resolved]

NARRATIVE: CASE EVENT DATE: 20241029
